FAERS Safety Report 6566672-0 (Version None)
Quarter: 2010Q1

REPORT INFORMATION
  Report Type: 
  Country: None (occurrence: None)
  Receive Date: 20100202
  Receipt Date: 20100125
  Transmission Date: 20100710
  Serious: Yes (Hospitalization)
  Sender: FDA-Public Use
  Company Number: BE-ROCHE-682097

PATIENT
  Sex: Female

DRUGS (4)
  1. XELODA [Suspect]
     Dosage: FREQUENCY:BID
     Route: 048
  2. ALENDRONATE SODIUM [Concomitant]
     Indication: OSTEOPOROSIS POSTMENOPAUSAL
     Route: 048
  3. CALCIUM [Concomitant]
     Indication: OSTEOPOROSIS POSTMENOPAUSAL
     Route: 048
  4. ENTEROL [Concomitant]
     Indication: DIARRHOEA
     Route: 048

REACTIONS (2)
  - DIARRHOEA [None]
  - SMALL BOWEL ANGIOEDEMA [None]
